FAERS Safety Report 24709970 (Version 1)
Quarter: 2024Q4

REPORT INFORMATION
  Report Type: Spontaneous
  Country: FR (occurrence: FR)
  Receive Date: 20241209
  Receipt Date: 20241209
  Transmission Date: 20250115
  Serious: Yes (Hospitalization)
  Sender: CELLTRION
  Company Number: FR-CELLTRION INC.-2024FR030351

PATIENT

DRUGS (16)
  1. INFLIXIMAB [Suspect]
     Active Substance: INFLIXIMAB
     Indication: Psoriatic arthropathy
     Dosage: 500 MG
     Route: 042
     Dates: start: 20230101, end: 20230905
  2. INFLIXIMAB [Suspect]
     Active Substance: INFLIXIMAB
     Dosage: 650 MG
     Route: 042
     Dates: start: 20230613
  3. INFLIXIMAB [Suspect]
     Active Substance: INFLIXIMAB
     Dosage: 650 MG
     Route: 042
     Dates: start: 20230726
  4. INFLIXIMAB [Suspect]
     Active Substance: INFLIXIMAB
     Dosage: 650 MG
     Route: 042
     Dates: start: 20230905
  5. INFLIXIMAB [Suspect]
     Active Substance: INFLIXIMAB
     Dosage: 575 MG
     Route: 042
     Dates: start: 20231205
  6. INFLIXIMAB [Suspect]
     Active Substance: INFLIXIMAB
     Dosage: 540 MG
     Route: 042
     Dates: start: 20240116
  7. INFLIXIMAB [Suspect]
     Active Substance: INFLIXIMAB
     Dosage: 540 MG
     Route: 042
     Dates: start: 20240227
  8. INFLIXIMAB [Suspect]
     Active Substance: INFLIXIMAB
     Dosage: 500 MG
     Route: 042
     Dates: start: 20240409
  9. INFLIXIMAB [Suspect]
     Active Substance: INFLIXIMAB
     Dosage: 500 MG
     Route: 042
     Dates: start: 20240521
  10. INFLIXIMAB [Suspect]
     Active Substance: INFLIXIMAB
     Dosage: 500 MG
     Route: 042
     Dates: start: 20240702
  11. INFLIXIMAB [Suspect]
     Active Substance: INFLIXIMAB
     Dosage: 500 MG
     Route: 042
     Dates: start: 20240813
  12. METFORMIN HYDROCHLORIDE [Concomitant]
     Active Substance: METFORMIN HYDROCHLORIDE
     Indication: Type 2 diabetes mellitus
     Dosage: UNK, QD
     Route: 048
     Dates: start: 20230601, end: 202310
  13. FERROUS SULFATE [Concomitant]
     Active Substance: FERROUS SULFATE
     Indication: Prophylaxis
     Dosage: UNK, QD
     Route: 048
     Dates: start: 20230517
  14. METHOTREXATE [Concomitant]
     Active Substance: METHOTREXATE
     Indication: Psoriatic arthropathy
     Dosage: 17.5 MG, ONCE PER WEEK
     Route: 058
     Dates: start: 20230724, end: 20240516
  15. RAMIPRIL [Concomitant]
     Active Substance: RAMIPRIL
     Indication: Hypertension
     Dosage: 1.25 MG, QD
     Route: 048
     Dates: start: 202212
  16. FOLATE SODIUM [Concomitant]
     Active Substance: FOLATE SODIUM
     Indication: Vitamin B12 deficiency
     Dosage: UNK MG
     Route: 048
     Dates: start: 202303

REACTIONS (1)
  - Obesity [Recovered/Resolved]

NARRATIVE: CASE EVENT DATE: 20231019
